FAERS Safety Report 7771711-5 (Version None)
Quarter: 2011Q3

REPORT INFORMATION
  Report Type: 
  Country: None (occurrence: None)
  Receive Date: 20110922
  Receipt Date: 20110323
  Transmission Date: 20111222
  Serious: No
  Sender: FDA-Public Use
  Company Number: US-ASTRAZENECA-2011SE10603

PATIENT
  Age: 53 Year
  Sex: Male
  Weight: 115.2 kg

DRUGS (6)
  1. SEROQUEL XR [Suspect]
     Indication: DEPRESSION
     Route: 048
     Dates: start: 20100128
  2. SEROQUEL XR [Suspect]
     Indication: PSYCHOTIC DISORDER
     Route: 048
     Dates: start: 20100128
  3. NIACIN [Concomitant]
     Indication: HYPERCHOLESTEROLAEMIA
  4. VENLAFEXINE [Concomitant]
     Indication: ANTIDEPRESSANT THERAPY
  5. FIBRATE [Concomitant]
     Indication: HYPERCHOLESTEROLAEMIA
  6. LISINOPRIL [Concomitant]
     Indication: HYPERTENSION

REACTIONS (2)
  - INTERVERTEBRAL DISC PROTRUSION [None]
  - CHANGE OF BOWEL HABIT [None]
